FAERS Safety Report 16300603 (Version 18)
Quarter: 2021Q1

REPORT INFORMATION
  Report Type: Report from Study
  Country: US (occurrence: US)
  Receive Date: 20190510
  Receipt Date: 20210325
  Transmission Date: 20210419
  Serious: Yes (Hospitalization, Other)
  Sender: FDA-Public Use
  Company Number: US-MALLINCKRODT-T201705406

PATIENT
  Age: 62 Year
  Sex: Female

DRUGS (23)
  1. REPOSITORY CORTICOTROPIN INJECTION [Suspect]
     Active Substance: CORTICOTROPIN
     Dosage: 80 UNITS /1ML, 2 TIMES PER WEEK MONDAY/THURSDAY
     Route: 058
  2. REPOSITORY CORTICOTROPIN INJECTION [Suspect]
     Active Substance: CORTICOTROPIN
     Dosage: 80 UNITS /1ML, 2 TIMES PER WEEK MONDAY/THURSDAY
     Route: 058
     Dates: start: 2019
  3. BENADRYL [Concomitant]
     Active Substance: DIPHENHYDRAMINE HYDROCHLORIDE
     Indication: PRODUCT USED FOR UNKNOWN INDICATION
     Dosage: UNK
     Route: 065
  4. METHOTREXATE. [Concomitant]
     Active Substance: METHOTREXATE
     Indication: PRODUCT USED FOR UNKNOWN INDICATION
     Dosage: UNK
     Route: 065
  5. REPOSITORY CORTICOTROPIN INJECTION [Suspect]
     Active Substance: CORTICOTROPIN
     Dosage: 0.5 ML, UNK
     Route: 065
  6. PREDNISONE. [Suspect]
     Active Substance: PREDNISONE
     Indication: PRODUCT USED FOR UNKNOWN INDICATION
     Dosage: 7.5 MG ONE DAY AND 5 MG ANOTHER DAY
     Route: 065
  7. REPOSITORY CORTICOTROPIN INJECTION [Suspect]
     Active Substance: CORTICOTROPIN
     Dosage: 80 UNITS /1ML, TWO TIMES PER WEEK (MONDAY/THURSDAY)
     Route: 058
  8. REPOSITORY CORTICOTROPIN INJECTION [Suspect]
     Active Substance: CORTICOTROPIN
     Dosage: 80 UNITS /1ML, 2 TIMES PER WEEK MONDAY/THURSDAY
     Route: 058
     Dates: end: 20190131
  9. METHOTREXATE. [Concomitant]
     Active Substance: METHOTREXATE
     Dosage: UNK, DECREASED DOSE
     Route: 065
  10. REPOSITORY CORTICOTROPIN INJECTION [Suspect]
     Active Substance: CORTICOTROPIN
     Dosage: 80 UNITS /1ML, 2 TIMES PER WEEK MONDAY/THURSDAY
     Route: 058
     Dates: start: 2019, end: 2019
  11. REPOSITORY CORTICOTROPIN INJECTION [Suspect]
     Active Substance: CORTICOTROPIN
     Dosage: 1 ML, UNK
     Route: 065
  12. PREDNISONE. [Suspect]
     Active Substance: PREDNISONE
     Dosage: UNK, INCREASED DOSE
     Route: 065
  13. REPOSITORY CORTICOTROPIN INJECTION [Suspect]
     Active Substance: CORTICOTROPIN
     Dosage: 80 UNITS /1ML, 2 TIMES PER WEEK MONDAY/THURSDAY
     Route: 058
  14. PREDNISONE. [Suspect]
     Active Substance: PREDNISONE
     Dosage: 5 MILLIGRAM (WEANED DOSE)
     Route: 065
  15. REPOSITORY CORTICOTROPIN INJECTION [Suspect]
     Active Substance: CORTICOTROPIN
     Dosage: 80 UNITS /1ML, 2 TIMES PER WEEK MONDAY/THURSDAY
     Route: 058
     Dates: start: 2019, end: 2019
  16. PREDNISONE. [Suspect]
     Active Substance: PREDNISONE
     Dosage: 10 MILLIGRAM
     Route: 065
  17. REPOSITORY CORTICOTROPIN INJECTION [Suspect]
     Active Substance: CORTICOTROPIN
     Indication: DERMATOMYOSITIS
     Dosage: 80 UNITS / 1 ML, 2 TIMES PER WEEK (MONDAY/THURSDAY)
     Route: 058
     Dates: start: 20151227
  18. REPOSITORY CORTICOTROPIN INJECTION [Suspect]
     Active Substance: CORTICOTROPIN
     Dosage: 80 UNITS /1ML, 2 TIMES PER WEEK MONDAY/THURSDAY
     Route: 058
  19. REPOSITORY CORTICOTROPIN INJECTION [Suspect]
     Active Substance: CORTICOTROPIN
     Dosage: 80 UNITS /1ML, 2 TIMES PER WEEK MONDAY/THURSDAY
     Route: 058
     Dates: start: 2019, end: 2019
  20. REPOSITORY CORTICOTROPIN INJECTION [Suspect]
     Active Substance: CORTICOTROPIN
     Dosage: 80 UNITS /1ML, 2 TIMES PER WEEK MONDAY/THURSDAY
     Route: 058
     Dates: end: 2020
  21. REPOSITORY CORTICOTROPIN INJECTION [Suspect]
     Active Substance: CORTICOTROPIN
     Dosage: UNK
     Route: 065
     Dates: start: 20200730, end: 202102
  22. PREDNISONE. [Suspect]
     Active Substance: PREDNISONE
     Dosage: UNK
     Route: 065
  23. PREDNISONE. [Suspect]
     Active Substance: PREDNISONE
     Dosage: 7.5 MILLIGRAM
     Route: 065

REACTIONS (40)
  - Intervertebral disc degeneration [Unknown]
  - Influenza [Recovering/Resolving]
  - Asthenia [Not Recovered/Not Resolved]
  - Memory impairment [Unknown]
  - Social avoidant behaviour [Unknown]
  - Anger [Not Recovered/Not Resolved]
  - Muscle disorder [Unknown]
  - Arthralgia [Not Recovered/Not Resolved]
  - Insomnia [Recovering/Resolving]
  - Hypersensitivity [Unknown]
  - Dermatomyositis [Unknown]
  - Condition aggravated [Unknown]
  - Pharyngitis streptococcal [Recovering/Resolving]
  - Road traffic accident [Unknown]
  - Fatigue [Unknown]
  - Nasopharyngitis [Unknown]
  - Fibromyalgia [Unknown]
  - Sensitivity to weather change [Unknown]
  - Feeling abnormal [Not Recovered/Not Resolved]
  - Dehydration [Unknown]
  - Emotional distress [Unknown]
  - Product dose omission issue [Unknown]
  - Cough [Not Recovered/Not Resolved]
  - Back pain [Not Recovered/Not Resolved]
  - Eye discharge [Unknown]
  - Autoimmune disorder [Not Recovered/Not Resolved]
  - Visual acuity reduced [Unknown]
  - Discomfort [Unknown]
  - Stress [Not Recovered/Not Resolved]
  - Hyperhidrosis [Not Recovered/Not Resolved]
  - Incorrect dose administered [Unknown]
  - Inappropriate schedule of product administration [Unknown]
  - Contusion [Not Recovered/Not Resolved]
  - Tooth disorder [Not Recovered/Not Resolved]
  - Rib fracture [Not Recovered/Not Resolved]
  - Blood creatine phosphokinase increased [Recovered/Resolved]
  - Impaired quality of life [Unknown]
  - Dyspnoea [Unknown]
  - Muscular weakness [Unknown]
  - Intentional underdose [Unknown]

NARRATIVE: CASE EVENT DATE: 20171216
